FAERS Safety Report 18823122 (Version 1)
Quarter: 2021Q1

REPORT INFORMATION
  Report Type: Report from Study
  Country: CA (occurrence: CA)
  Receive Date: 20210201
  Receipt Date: 20210201
  Transmission Date: 20210419
  Serious: Yes (Other)
  Sender: FDA-Public Use
  Company Number: CA-PFIZER INC-2021084995

PATIENT
  Sex: Female

DRUGS (5)
  1. METHOTREXATE SODIUM. [Suspect]
     Active Substance: METHOTREXATE SODIUM
     Indication: PSORIASIS
  2. BETAMETHASONE DIPROPIONATE/CALCIPOTRIOL MONOHYDRATE [Concomitant]
  3. DOVONEX [Concomitant]
     Active Substance: CALCIPOTRIENE
  4. OTEZLA [Concomitant]
     Active Substance: APREMILAST
  5. SORIATANE [Concomitant]
     Active Substance: ACITRETIN

REACTIONS (10)
  - Pain [Unknown]
  - Pruritus [Unknown]
  - Haemorrhage [Unknown]
  - Gait disturbance [Unknown]
  - Psoriasis [Unknown]
  - Pain of skin [Unknown]
  - Quality of life decreased [Unknown]
  - Burning sensation [Unknown]
  - Pain in extremity [Unknown]
  - Chest X-ray abnormal [Unknown]
